FAERS Safety Report 6264050-5 (Version None)
Quarter: 2009Q3

REPORT INFORMATION
  Report Type: 
  Country: None (occurrence: None)
  Receive Date: 20090710
  Receipt Date: 20090707
  Transmission Date: 20100115
  Serious: Yes (Life-Threatening, Hospitalization)
  Sender: FDA-Public Use
  Company Number: PHHY2009FR27002

PATIENT
  Age: 85 Year
  Sex: Female

DRUGS (5)
  1. ACLASTA [Suspect]
     Indication: OSTEOPOROSIS
     Dosage: UNK
     Dates: start: 20090423
  2. ACLASTA [Suspect]
     Indication: SPINAL COMPRESSION FRACTURE
  3. BISPHOSPHONATES [Concomitant]
     Indication: SPINAL COMPRESSION FRACTURE
     Route: 048
  4. CALCIUM [Concomitant]
  5. VITAMIN D [Concomitant]

REACTIONS (6)
  - CARDIAC ENZYMES INCREASED [None]
  - CONCOMITANT DISEASE PROGRESSION [None]
  - ELECTROCARDIOGRAM ST SEGMENT ELEVATION [None]
  - HYPOTENSION [None]
  - MYOCARDIAL INFARCTION [None]
  - SEPTIC SHOCK [None]
